FAERS Safety Report 4384975-5 (Version None)
Quarter: 2004Q2

REPORT INFORMATION
  Report Type: 
  Country: None (occurrence: None)
  Receive Date: 20040625
  Receipt Date: 20040608
  Transmission Date: 20050107
  Serious: Yes (Life-Threatening, Hospitalization)
  Sender: FDA-Public Use
  Company Number: PHHO2004GB08161

PATIENT
  Age: 37 Year
  Sex: Female
  Weight: 44 kg

DRUGS (5)
  1. ERL080 [Suspect]
     Indication: RENAL TRANSPLANT
     Dosage: 720 MG, BID
     Route: 048
     Dates: start: 20040301, end: 20040527
  2. ERL080 [Suspect]
     Dosage: 360 MG, BID
     Route: 048
     Dates: start: 20040528, end: 20040602
  3. NEORAL [Suspect]
     Indication: RENAL TRANSPLANT
     Dosage: 125 MG, BID
     Route: 048
     Dates: start: 20040301, end: 20040527
  4. NEORAL [Suspect]
     Dosage: 100 MG, BID
     Route: 048
     Dates: start: 20040528
  5. PREDNISOLONE [Suspect]
     Indication: RENAL TRANSPLANT
     Dosage: 5 MG, QD
     Route: 048
     Dates: start: 20040301

REACTIONS (7)
  - FEELING ABNORMAL [None]
  - GINGIVAL SWELLING [None]
  - LETHARGY [None]
  - NEUTROPENIA [None]
  - PHARYNGOLARYNGEAL PAIN [None]
  - SWELLING FACE [None]
  - WHITE BLOOD CELL COUNT DECREASED [None]
